FAERS Safety Report 23315706 (Version 3)
Quarter: 2024Q1

REPORT INFORMATION
  Report Type: Report from Study
  Country: FR (occurrence: FR)
  Receive Date: 20231219
  Receipt Date: 20240308
  Transmission Date: 20240409
  Serious: Yes (Other)
  Sender: FDA-Public Use
  Company Number: FR-BIOCRYST PHARMACEUTICALS, INC.-2023BCR01107

PATIENT

DRUGS (1)
  1. ORLADEYO [Suspect]
     Active Substance: BEROTRALSTAT HYDROCHLORIDE
     Indication: Hereditary angioedema
     Dosage: UNK

REACTIONS (4)
  - Diarrhoea haemorrhagic [Recovered/Resolved]
  - Abdominal pain upper [Unknown]
  - Pain in extremity [Unknown]
  - Carotidynia [Not Recovered/Not Resolved]

NARRATIVE: CASE EVENT DATE: 20231101
